FAERS Safety Report 11378912 (Version 1)
Quarter: 2015Q3

REPORT INFORMATION
  Report Type: Spontaneous
  Country: US (occurrence: US)
  Receive Date: 20150811
  Receipt Date: 20150811
  Transmission Date: 20151125
  Serious: Yes (Hospitalization, Other)
  Sender: FDA-Public Use
  Company Number: US-ELI_LILLY_AND_COMPANY-US200803001345

PATIENT
  Age: 65 Year
  Sex: Female

DRUGS (3)
  1. CIALIS [Suspect]
     Active Substance: TADALAFIL
     Indication: PULMONARY ARTERIAL HYPERTENSION
     Dosage: 20 MG, UNK
     Dates: start: 200403, end: 200405
  2. CIALIS [Suspect]
     Active Substance: TADALAFIL
     Dosage: 40 MG, UNK
     Dates: start: 200405, end: 2007
  3. CIALIS [Suspect]
     Active Substance: TADALAFIL
     Dosage: 40 MG, UNK
     Dates: start: 2007

REACTIONS (1)
  - Coronary artery occlusion [Recovered/Resolved]

NARRATIVE: CASE EVENT DATE: 200707
